FAERS Safety Report 5467718-3 (Version None)
Quarter: 2007Q3

REPORT INFORMATION
  Report Type: 
  Country: None (occurrence: None)
  Receive Date: 20070921
  Receipt Date: 20070906
  Transmission Date: 20080115
  Serious: Yes (Hospitalization, Other)
  Sender: FDA-Public Use
  Company Number: 2007US-09910

PATIENT
  Age: 81 Year
  Sex: Female

DRUGS (3)
  1. ISOPTIN SR [Suspect]
     Indication: HYPERTENSION
     Dosage: 320 MG, (4) 80 MG QD, ORAL
     Route: 048
     Dates: start: 19860101, end: 20060715
  2. NEOPOGEN INJECTION [Concomitant]
  3. HEPARIN-FRACTION, SODIUM SALT INJECTION [Concomitant]

REACTIONS (11)
  - ANAL DISCOMFORT [None]
  - DYSPEPSIA [None]
  - EARLY SATIETY [None]
  - FAECES DISCOLOURED [None]
  - GASTRIC HAEMORRHAGE [None]
  - MUSCULAR WEAKNESS [None]
  - NAUSEA [None]
  - PALPITATIONS [None]
  - POLLAKIURIA [None]
  - RECTAL HAEMORRHAGE [None]
  - THROMBOSIS [None]
